FAERS Safety Report 5472949-2 (Version None)
Quarter: 2007Q4

REPORT INFORMATION
  Report Type: 
  Country: None (occurrence: None)
  Receive Date: 20071001
  Receipt Date: 20070125
  Transmission Date: 20080405
  Serious: No
  Sender: FDA-Public Use
  Company Number: US-ASTRAZENECA-2007UW01628

PATIENT
  Sex: Female

DRUGS (1)
  1. ARIMIDEX [Suspect]
     Indication: NEOPLASM PROPHYLAXIS
     Route: 048
     Dates: start: 20051001

REACTIONS (2)
  - NON-HODGKIN'S LYMPHOMA [None]
  - OVARIAN ENLARGEMENT [None]
